FAERS Safety Report 14384066 (Version 1)
Quarter: 2018Q1

REPORT INFORMATION
  Report Type: Spontaneous
  Country: US (occurrence: US)
  Receive Date: 20180115
  Receipt Date: 20180115
  Transmission Date: 20180509
  Serious: No
  Sender: FDA-Public Use
  Company Number: US-PFIZER INC-2018016144

PATIENT
  Age: 81 Year
  Sex: Female

DRUGS (1)
  1. MEDROL [Suspect]
     Active Substance: METHYLPREDNISOLONE
     Indication: SINUSITIS
     Dosage: UNK (1 PACK AS DIRECTED, GIVEN MULTIPLE TIMES)
     Route: 048
     Dates: start: 2011, end: 2015

REACTIONS (2)
  - Drug hypersensitivity [Unknown]
  - Flushing [Unknown]
